FAERS Safety Report 9096519 (Version 1)
Quarter: 2013Q1

REPORT INFORMATION
  Report Type: Spontaneous
  Country: CA (occurrence: CA)
  Receive Date: 20130211
  Receipt Date: 20130211
  Transmission Date: 20140127
  Serious: Yes (Death, Other)
  Sender: FDA-Public Use
  Company Number: PHHY2013CA012339

PATIENT
  Sex: 0

DRUGS (18)
  1. GLEEVEC [Suspect]
     Dosage: 400 MG, 1 EVERY 1 DAY
     Route: 048
  2. CYTARABINE [Suspect]
     Dosage: 40 MG, UNK
     Route: 037
  3. DOXORUBICIN [Suspect]
     Dosage: 30 MG/M2, UNK
     Route: 042
  4. METHOTREXATE [Suspect]
     Dosage: 12 MG, UNK
     Route: 037
  5. METHOTREXATE [Suspect]
     Dosage: 400 MG/M2, UNK
     Route: 037
  6. MERCAPTOPURINE [Suspect]
     Dosage: 50 MG/M2, UNK
     Route: 048
  7. ASPARAGINASE [Suspect]
     Route: 030
  8. HYDROCORTISONE [Suspect]
     Dosage: 15 MG, UNK
     Route: 037
  9. LEUCOVORIN [Suspect]
     Route: 042
  10. PREDNISONE [Suspect]
     Dosage: 10 MG, 4 EVERY ONE DAY
     Route: 048
  11. RADIATION THERAPY [Suspect]
  12. VINCRISTIN SULFATE [Suspect]
     Dosage: 2 MG, UNK
     Route: 042
  13. ALENDRONATE [Concomitant]
  14. BACTRIM [Concomitant]
  15. CALCIUM + VITAMIN D                /01483701/ [Concomitant]
  16. FLUCONAZOLE [Concomitant]
  17. PENTAMIDINE ISETHIONATE [Concomitant]
  18. RISEDRONATE SODIUM [Concomitant]

REACTIONS (1)
  - Subdural haematoma [Fatal]
